FAERS Safety Report 8298683-1 (Version None)
Quarter: 2012Q2

REPORT INFORMATION
  Report Type: 
  Country: None (occurrence: None)
  Receive Date: 20120419
  Receipt Date: 20120410
  Transmission Date: 20120825
  Serious: Yes (Other)
  Sender: FDA-Public Use
  Company Number: US-ASTRAZENECA-2012SE23470

PATIENT
  Age: 55 Year
  Sex: Female
  Weight: 63.5 kg

DRUGS (7)
  1. SEROQUEL XR [Suspect]
     Indication: SLEEP DISORDER
     Route: 048
  2. WALBUTRINE [Concomitant]
  3. XANAX [Concomitant]
  4. SEROQUEL XR [Suspect]
     Indication: ANXIETY
     Route: 048
  5. SEROQUEL XR [Suspect]
     Indication: DEPRESSION
     Route: 048
  6. HYDROCODONE [Concomitant]
  7. NAPROXEN (ALEVE) [Concomitant]

REACTIONS (9)
  - INTENTIONAL DRUG MISUSE [None]
  - RIB FRACTURE [None]
  - MALAISE [None]
  - RASH GENERALISED [None]
  - MUSCULOSKELETAL CHEST PAIN [None]
  - NAUSEA [None]
  - TACHYPHRENIA [None]
  - OFF LABEL USE [None]
  - DYSPHAGIA [None]
